FAERS Safety Report 16954397 (Version 3)
Quarter: 2019Q4

REPORT INFORMATION
  Report Type: Report from Study
  Country: US (occurrence: US)
  Receive Date: 20191023
  Receipt Date: 20191128
  Transmission Date: 20200122
  Serious: No
  Sender: FDA-Public Use
  Company Number: US-BEH-2019108408

PATIENT
  Age: 48 Year
  Sex: Female
  Weight: 66.67 kg

DRUGS (2)
  1. HIZENTRA [Suspect]
     Active Substance: HUMAN IMMUNOGLOBULIN G
     Indication: IMMUNODEFICIENCY COMMON VARIABLE
     Dosage: 10 GRAM, QW
     Route: 058
     Dates: start: 20191013
  2. HIZENTRA [Suspect]
     Active Substance: HUMAN IMMUNOGLOBULIN G
     Dosage: UNK
     Route: 058
     Dates: start: 20191020, end: 20191020

REACTIONS (5)
  - No adverse event [Unknown]
  - Infusion site pruritus [Recovering/Resolving]
  - Infusion site pain [Recovering/Resolving]
  - Product supply issue [Unknown]
  - Rash [Recovering/Resolving]

NARRATIVE: CASE EVENT DATE: 20191020
